FAERS Safety Report 25110741 (Version 1)
Quarter: 2025Q1

REPORT INFORMATION
  Report Type: Spontaneous
  Country: CN (occurrence: CN)
  Receive Date: 20250324
  Receipt Date: 20250324
  Transmission Date: 20250409
  Serious: Yes (Other)
  Sender: TOLMAR
  Company Number: CN-TOLMAR, INC.-25CN057718

PATIENT
  Age: 66 Year
  Sex: Male

DRUGS (3)
  1. LEUPROLIDE ACETATE [Suspect]
     Active Substance: LEUPROLIDE ACETATE
     Indication: Prostate cancer
  2. RADIATION THERAPY [Concomitant]
     Active Substance: RADIATION THERAPY
     Indication: Metastases to pelvis
  3. BICALUTAMIDE [Concomitant]
     Active Substance: BICALUTAMIDE
     Indication: Metastases to pelvis

REACTIONS (6)
  - Malignant neoplasm progression [Recovered/Resolved]
  - Metastases to central nervous system [Recovered/Resolved]
  - Metastases to bone [Recovered/Resolved]
  - Oedema peripheral [Recovered/Resolved]
  - Extensor plantar response [Recovered/Resolved]
  - Muscular weakness [Recovered/Resolved]
